FAERS Safety Report 5830474-0 (Version None)
Quarter: 2008Q3

REPORT INFORMATION
  Report Type: 
  Country: None (occurrence: None)
  Receive Date: 20080801
  Receipt Date: 20070601
  Transmission Date: 20090109
  Serious: No
  Sender: FDA-Public Use
  Company Number: US-BRISTOL-MYERS SQUIBB COMPANY-13801097

PATIENT
  Age: 66 Year
  Sex: Male
  Weight: 88 kg

DRUGS (7)
  1. WARFARIN SODIUM [Suspect]
     Indication: ATRIAL FIBRILLATION
     Dosage: 5MG DAILY FOR 2 DAYS, 2.5MG DAILY FOR 1 DAY, THEN 5MG DAILY FOR 2 DAYS. (5X A WEEK)
  2. WARFARIN SODIUM [Suspect]
     Indication: TRANSIENT ISCHAEMIC ATTACK
     Dosage: 5MG DAILY FOR 2 DAYS, 2.5MG DAILY FOR 1 DAY, THEN 5MG DAILY FOR 2 DAYS. (5X A WEEK)
  3. CARDIZEM [Concomitant]
  4. TRIAMTERENE [Concomitant]
  5. ASPIRIN [Concomitant]
     Route: 048
  6. VITAMIN TAB [Concomitant]
  7. MAGNESIUM SULFATE [Concomitant]

REACTIONS (3)
  - COAGULATION TIME SHORTENED [None]
  - SKIN ATROPHY [None]
  - SKIN LACERATION [None]
